FAERS Safety Report 12911075 (Version 2)
Quarter: 2016Q4

REPORT INFORMATION
  Report Type: Spontaneous
  Country: US (occurrence: US)
  Receive Date: 20161104
  Receipt Date: 20161130
  Transmission Date: 20170207
  Serious: No
  Sender: FDA-Public Use
  Company Number: US-PFIZER INC-2016508808

PATIENT
  Age: 70 Year
  Sex: Female

DRUGS (3)
  1. FUROSEMIDE. [Suspect]
     Active Substance: FUROSEMIDE
     Indication: OEDEMA
     Dosage: 10MG, AS NEEDED
  2. FUROSEMIDE. [Suspect]
     Active Substance: FUROSEMIDE
     Indication: JOINT SWELLING
     Dosage: 10 MG, 1X/DAY
     Dates: start: 20160810
  3. FUROSEMIDE. [Suspect]
     Active Substance: FUROSEMIDE
     Indication: BLUE TOE SYNDROME

REACTIONS (1)
  - Drug ineffective [Unknown]
